FAERS Safety Report 6527924-3 (Version None)
Quarter: 2010Q1

REPORT INFORMATION
  Report Type: 
  Country: None (occurrence: None)
  Receive Date: 20100106
  Receipt Date: 20091223
  Transmission Date: 20100710
  Serious: Yes (Other)
  Sender: FDA-Public Use
  Company Number: US-SANOFI-AVENTIS-2009SA011454

PATIENT
  Sex: Female

DRUGS (3)
  1. GLYBURIDE [Suspect]
  2. LANTUS [Suspect]
     Dosage: DOSE:11 UNIT(S)
     Route: 058
     Dates: start: 20050101
  3. OPTICLICK [Suspect]
     Dates: start: 20050101

REACTIONS (2)
  - GLAUCOMA [None]
  - RENAL FAILURE CHRONIC [None]
